FAERS Safety Report 17170886 (Version 2)
Quarter: 2020Q1

REPORT INFORMATION
  Report Type: Report from Study
  Country: US (occurrence: US)
  Receive Date: 20191218
  Receipt Date: 20200311
  Transmission Date: 20200409
  Serious: Yes (Other)
  Sender: FDA-Public Use
  Company Number: US-REGENERON PHARMACEUTICALS, INC.-2019-55475

PATIENT

DRUGS (17)
  1. NACL [Concomitant]
     Active Substance: SODIUM CHLORIDE
     Indication: FLUID REPLACEMENT
     Dosage: 1000 ML, ONCE
     Route: 042
     Dates: start: 20190912, end: 20190912
  2. HYDROCORTISONE. [Concomitant]
     Active Substance: HYDROCORTISONE
     Indication: ADRENAL INSUFFICIENCY
     Dosage: 15 MG, EVERY MORNING
     Route: 048
     Dates: start: 20190913
  3. ZOFRAN [Concomitant]
     Active Substance: ONDANSETRON HYDROCHLORIDE
     Indication: NAUSEA
     Dosage: 8 MG, TID
     Route: 048
     Dates: start: 20181106
  4. PEPCID                             /00305201/ [Concomitant]
     Active Substance: ALUMINUM HYDROXIDE\MAGNESIUM CARBONATE
     Indication: PROPHYLAXIS
     Dosage: 20 MG, QD
     Route: 048
     Dates: start: 20190912
  5. HYDROCORTISONE. [Concomitant]
     Active Substance: HYDROCORTISONE
     Dosage: 5 MG, EVERY EVENING
     Route: 048
     Dates: start: 20190913
  6. COMPAZINE                          /00013302/ [Concomitant]
     Active Substance: PROCHLORPERAZINE EDISYLATE
     Indication: NAUSEA
     Dosage: 10 MG, AS NECESSARY
     Route: 048
     Dates: start: 20180815
  7. TRAZODONE [Concomitant]
     Active Substance: TRAZODONE HYDROCHLORIDE
     Indication: INSOMNIA
     Dosage: 50 MG, QD
     Route: 048
     Dates: start: 20150101
  8. XGEVA [Concomitant]
     Active Substance: DENOSUMAB
     Indication: METASTASES TO BONE
     Dosage: 120 MG, EVERY 4 WEEKS
     Route: 058
     Dates: start: 20190124
  9. DEXAMETHASONE. [Concomitant]
     Active Substance: DEXAMETHASONE
     Indication: ADRENAL INSUFFICIENCY
     Dosage: 4 MG, BID
     Route: 048
     Dates: start: 20190912
  10. REGN3767 [Suspect]
     Active Substance: FIANLIMAB
     Dosage: 1600 MG, Q3W
     Route: 042
     Dates: start: 20191003
  11. CEMIPLIMAB [Suspect]
     Active Substance: CEMIPLIMAB
     Dosage: 350 MG, Q3W
     Route: 042
     Dates: start: 20191003
  12. TRIAMCINOLONE ACETONIDE. [Concomitant]
     Active Substance: TRIAMCINOLONE ACETONIDE
     Indication: RASH
     Dosage: UNK
     Route: 061
     Dates: start: 20190711
  13. FLUOXETINE [Concomitant]
     Active Substance: FLUOXETINE HYDROCHLORIDE
     Indication: DEPRESSION
     Dosage: 20 MG, QD
     Route: 048
     Dates: start: 20180619
  14. FLONASE                            /00908302/ [Concomitant]
     Active Substance: MOMETASONE FUROATE
     Indication: RHINITIS ALLERGIC
     Dosage: UNK, AS NECESSARY
     Route: 045
     Dates: start: 20181213
  15. REGN3767 [Suspect]
     Active Substance: FIANLIMAB
     Indication: MALIGNANT MELANOMA
     Dosage: 1600 MG, Q3W
     Route: 042
     Dates: start: 20181211, end: 20190822
  16. CEMIPLIMAB [Suspect]
     Active Substance: CEMIPLIMAB
     Indication: MALIGNANT MELANOMA
     Dosage: 350 MG, Q3W
     Route: 042
     Dates: start: 20181211, end: 20190822
  17. PERCOCET                           /00446701/ [Concomitant]
     Active Substance: ACETAMINOPHEN\OXYCODONE HYDROCHLORIDE\OXYCODONE TEREPHTHALATE
     Indication: GROIN PAIN
     Dosage: 330 MG, AS NECESSARY
     Route: 048
     Dates: start: 20181106

REACTIONS (1)
  - Adrenal insufficiency [Recovering/Resolving]

NARRATIVE: CASE EVENT DATE: 20190919
